FAERS Safety Report 8886445 (Version 2)
Quarter: 2012Q4

REPORT INFORMATION
  Report Type: 
  Country: JP (occurrence: JP)
  Receive Date: 20121105
  Receipt Date: 20121126
  Transmission Date: 20130627
  Serious: Yes (Hospitalization)
  Sender: FDA-Public Use
  Company Number: JP-GLAXOSMITHKLINE-B0840588A

PATIENT
  Age: 35 Year
  Sex: Female

DRUGS (4)
  1. LAMICTAL [Suspect]
     Indication: BIPOLAR I DISORDER
     Dosage: 25MG Per day
     Route: 048
     Dates: start: 20120920, end: 20120928
  2. LAMICTAL [Suspect]
     Indication: BIPOLAR I DISORDER
     Dosage: 50MG Per day
     Route: 048
     Dates: start: 20120929, end: 20121014
  3. SILECE [Concomitant]
     Indication: INSOMNIA
     Dosage: 1MG Per day
     Route: 048
     Dates: start: 20120712, end: 20121017
  4. REFLEX (JAPAN) [Concomitant]
     Indication: DEPRESSION
     Dosage: 15MG Per day
     Route: 048
     Dates: start: 20120915, end: 20121017

REACTIONS (5)
  - Rash generalised [Recovered/Resolved]
  - Mouth haemorrhage [Recovered/Resolved]
  - Pyrexia [Recovered/Resolved]
  - Lip oedema [Unknown]
  - Blood lactate dehydrogenase increased [Unknown]
